FAERS Safety Report 10613883 (Version 1)
Quarter: 2014Q4

REPORT INFORMATION
  Report Type: Spontaneous
  Country: FR (occurrence: FR)
  Receive Date: 20141128
  Receipt Date: 20141128
  Transmission Date: 20150529
  Serious: Yes (Life-Threatening)
  Sender: FDA-Public Use
  Company Number: FR-PFIZER INC-2014322901

PATIENT
  Age: 13 Year
  Sex: Female

DRUGS (6)
  1. TAZOCILLINE [Suspect]
     Active Substance: PIPERACILLIN SODIUM\TAZOBACTAM SODIUM
     Indication: FEBRILE BONE MARROW APLASIA
     Dosage: 3600 MG, 4X/DAY
     Route: 042
     Dates: start: 20141101, end: 20141114
  2. VANCOMYCIN HCL [Suspect]
     Active Substance: VANCOMYCIN HYDROCHLORIDE
     Indication: FEBRILE BONE MARROW APLASIA
     Dosage: 1.5 G, DAILY
     Route: 042
     Dates: start: 20141103, end: 20141113
  3. AMIKACIN [Suspect]
     Active Substance: AMIKACIN
     Indication: FEBRILE BONE MARROW APLASIA
     Dosage: 700 MG, DAILY
     Route: 042
     Dates: start: 20141112, end: 20141114
  4. CANCIDAS [Suspect]
     Active Substance: CASPOFUNGIN ACETATE
     Dosage: 50 MG, DAILY
     Route: 042
     Dates: end: 20141114
  5. TIENAM [Suspect]
     Active Substance: CILASTATIN SODIUM\IMIPENEM
     Indication: FEBRILE BONE MARROW APLASIA
     Dosage: 500 MG, 4X/DAY
     Route: 042
     Dates: start: 20141112, end: 20141114
  6. CANCIDAS [Suspect]
     Active Substance: CASPOFUNGIN ACETATE
     Indication: FEBRILE BONE MARROW APLASIA
     Dosage: 70 MG, DAILY
     Route: 042
     Dates: start: 20141111

REACTIONS (3)
  - Hypotension [Recovering/Resolving]
  - Dermatitis exfoliative [Recovering/Resolving]
  - Pyrexia [Recovering/Resolving]

NARRATIVE: CASE EVENT DATE: 20141112
